FAERS Safety Report 8613603-5 (Version None)
Quarter: 2012Q3

REPORT INFORMATION
  Report Type: 
  Country: None (occurrence: None)
  Receive Date: 20120823
  Receipt Date: 20120808
  Transmission Date: 20120928
  Serious: Yes (Hospitalization, Other)
  Sender: FDA-Public Use
  Company Number: US-009507513-1010USA00121

PATIENT

DRUGS (7)
  1. FOSAMAX PLUS D [Suspect]
     Indication: OSTEOPOROSIS
     Route: 048
  2. FOSAMAX [Suspect]
     Indication: OSTEOPOROSIS
     Dosage: 10 MG, UNK
     Route: 048
     Dates: start: 19990623, end: 20011201
  3. FOSAMAX [Suspect]
     Indication: OSTEOPENIA
     Dosage: 70 MG, UNK
     Route: 048
     Dates: start: 20020401, end: 20081003
  4. FOSAMAX [Suspect]
     Dosage: 70 MG, UNK
     Route: 048
     Dates: start: 20081004, end: 20100801
  5. FOSAMAX [Suspect]
  6. VITAPLEX [Concomitant]
     Route: 048
     Dates: start: 19960101, end: 20061001
  7. FOSAMAX PLUS D [Suspect]
     Indication: OSTEOPENIA

REACTIONS (27)
  - FALL [None]
  - TENDONITIS [None]
  - BLOOD PRESSURE INCREASED [None]
  - FUNGAL INFECTION [None]
  - OESOPHAGITIS [None]
  - URINARY TRACT INFECTION [None]
  - HYPERTENSION [None]
  - ANXIETY DISORDER [None]
  - IRON DEFICIENCY ANAEMIA [None]
  - EROSIVE OESOPHAGITIS [None]
  - DIVERTICULUM INTESTINAL HAEMORRHAGIC [None]
  - HYPOKALAEMIA [None]
  - ELECTROCARDIOGRAM T WAVE AMPLITUDE DECREASED [None]
  - SINUS DISORDER [None]
  - HAEMORRHOIDS [None]
  - FEMUR FRACTURE [None]
  - MUSCLE ENZYME INCREASED [None]
  - GASTRIC POLYPS [None]
  - BONE DENSITY DECREASED [None]
  - SINUSITIS [None]
  - HIATUS HERNIA [None]
  - DEPRESSION [None]
  - UPPER RESPIRATORY TRACT INFECTION [None]
  - DRUG HYPERSENSITIVITY [None]
  - UTERINE DISORDER [None]
  - DENTAL CARIES [None]
  - URTICARIA [None]
